FAERS Safety Report 24020097 (Version 2)
Quarter: 2024Q3

REPORT INFORMATION
  Report Type: Spontaneous
  Country: US (occurrence: US)
  Receive Date: 20240627
  Receipt Date: 20240703
  Transmission Date: 20241016
  Serious: Yes (Other)
  Sender: JOHNSON AND JOHNSON
  Company Number: US-JNJFOC-20240649171

PATIENT

DRUGS (1)
  1. LISTERINE ORIGINAL [Suspect]
     Active Substance: EUCALYPTOL\MENTHOL\METHYL SALICYLATE\THYMOL
     Indication: Product used for unknown indication
     Route: 048

REACTIONS (2)
  - Drug abuse [Unknown]
  - Product quality issue [Unknown]
